FAERS Safety Report 5363153-7 (Version None)
Quarter: 2007Q2

REPORT INFORMATION
  Report Type: 
  Country: None (occurrence: None)
  Receive Date: 20070620
  Receipt Date: 20070611
  Transmission Date: 20071010
  Serious: Yes (Other)
  Sender: FDA-Public Use
  Company Number: PHBS2007FI09770

PATIENT
  Age: 76 Year
  Sex: Male

DRUGS (14)
  1. PAMIDRONATE DISODIUM [Suspect]
     Indication: MULTIPLE MYELOMA
     Dosage: 90 MG, QMO
     Route: 042
  2. ZOLEDRONIC ACID [Suspect]
     Indication: MULTIPLE MYELOMA
     Dosage: 4 MG, QMO
     Route: 042
  3. METHYLPREDNISOLONE [Concomitant]
  4. VINCRISTINE [Concomitant]
  5. LOMUSTINE [Concomitant]
  6. CYCLOPHOSPHAMIDE [Concomitant]
  7. MELPHALAN [Concomitant]
  8. DINATRIUM CHLODRONATE [Concomitant]
     Dosage: 1600 MG, UNK
  9. CALCIUM CHLORIDE [Concomitant]
  10. VITAMIN D [Concomitant]
  11. RADIOTHERAPY [Concomitant]
  12. ADRIAMYCINE + VINCRISTINE [Concomitant]
  13. DEXAMETHASONE 0.5MG TAB [Concomitant]
  14. THALIDOMIDE [Concomitant]
     Dosage: 100 MG, UNK
     Route: 048

REACTIONS (9)
  - BLOOD CREATININE INCREASED [None]
  - BLOOD IMMUNOGLOBULIN A DECREASED [None]
  - BLOOD IMMUNOGLOBULIN M DECREASED [None]
  - BLOOD UREA INCREASED [None]
  - C-REACTIVE PROTEIN INCREASED [None]
  - HAEMODIALYSIS [None]
  - MONOCLONAL IMMUNOGLOBULIN PRESENT [None]
  - PNEUMONIA [None]
  - RENAL IMPAIRMENT [None]
